FAERS Safety Report 5124017-7 (Version None)
Quarter: 2006Q3

REPORT INFORMATION
  Report Type: 
  Country: None (occurrence: None)
  Receive Date: 20060808
  Receipt Date: 20050905
  Transmission Date: 20061208
  Serious: Yes (Hospitalization)
  Sender: FDA-Public Use
  Company Number: 200516488US

PATIENT
  Age: 73 Year
  Sex: Male
  Weight: 96.4 kg

DRUGS (5)
  1. LASIX [Suspect]
     Dosage: 40 MG BID
  2. LASIX [Suspect]
     Dates: start: 20050601
  3. NPROXEN SODIUM (ALEVE) [Concomitant]
  4. BUPROPION HCL [Concomitant]
  5. COREG [Concomitant]

REACTIONS (2)
  - DEHYDRATION [None]
  - OVERDOSE [None]
